FAERS Safety Report 9182663 (Version 3)
Quarter: 2013Q3

REPORT INFORMATION
  Report Type: Report from Study
  Country: US (occurrence: US)
  Receive Date: 20130322
  Receipt Date: 20130711
  Transmission Date: 20140515
  Serious: Yes (Hospitalization)
  Sender: FDA-Public Use
  Company Number: US-VERTEX PHARMACEUTICALS INC.-2013-003906

PATIENT
  Age: 19 Year
  Sex: Male

DRUGS (2)
  1. VX-770 [Suspect]
     Indication: CYSTIC FIBROSIS
     Dosage: 150 MG, BID
     Route: 048
     Dates: start: 20120913, end: 20121212
  2. VX-770 [Suspect]
     Dosage: 150 MG, BID
     Route: 048
     Dates: start: 20130411

REACTIONS (7)
  - Pneumonia [Recovered/Resolved]
  - Pulmonary function test decreased [Recovered/Resolved]
  - Influenza [Recovered/Resolved]
  - Abasia [Recovered/Resolved]
  - Atelectasis [Unknown]
  - Fatigue [Unknown]
  - Asthenia [Unknown]
